FAERS Safety Report 7958831-7 (Version None)
Quarter: 2011Q4

REPORT INFORMATION
  Report Type: 
  Country: None (occurrence: None)
  Receive Date: 20111206
  Receipt Date: 20111124
  Transmission Date: 20120403
  Serious: Yes (Other)
  Sender: FDA-Public Use
  Company Number: JP-UCBSA-045651

PATIENT
  Age: 88 Year
  Sex: Female

DRUGS (5)
  1. VALERIN [Concomitant]
     Indication: EPILEPSY
     Route: 045
     Dates: start: 20110404, end: 20111029
  2. KEPPRA [Suspect]
     Indication: EPILEPSY
     Dosage: TOTAL DAILY DOSE: 1000 MG
     Route: 045
     Dates: start: 20110928
  3. VALERIN [Concomitant]
     Route: 045
     Dates: start: 20111030, end: 20111104
  4. VALERIN [Concomitant]
     Dosage: TOTAL DOSE:18 ML
     Route: 045
     Dates: start: 20111105
  5. MUCOSIL-10 [Concomitant]
     Dosage: TOTAL DOSE: 3 G
     Route: 045
     Dates: start: 20110713

REACTIONS (1)
  - HYPOKALAEMIA [None]
